FAERS Safety Report 14141407 (Version 3)
Quarter: 2018Q1

REPORT INFORMATION
  Report Type: Spontaneous
  Country: US (occurrence: US)
  Receive Date: 20171030
  Receipt Date: 20180215
  Transmission Date: 20180508
  Serious: Yes (Other)
  Sender: FDA-Public Use
  Company Number: US-BAYER-2017-208255

PATIENT
  Age: 22 Year
  Sex: Female
  Weight: 59.64 kg

DRUGS (3)
  1. SKYLA [Suspect]
     Active Substance: LEVONORGESTREL
     Dosage: 14 MCG/24HR, CONT
     Route: 015
     Dates: start: 20170717, end: 20171023
  2. PHENAZOPYRIDINE. [Concomitant]
     Active Substance: PHENAZOPYRIDINE
     Indication: PAIN
     Dosage: 1 DF, TID
     Route: 048
  3. NITROFURANTOIN. [Concomitant]
     Active Substance: NITROFURANTOIN

REACTIONS (3)
  - Abdominal pain lower [None]
  - Device dislocation [None]
  - Medical device discomfort [None]

NARRATIVE: CASE EVENT DATE: 20170717
